FAERS Safety Report 11204867 (Version 1)
Quarter: 2015Q2

REPORT INFORMATION
  Report Type: Spontaneous
  Country: US (occurrence: None)
  Receive Date: 20150618
  Receipt Date: 20150618
  Transmission Date: 20150821
  Serious: Yes (Hospitalization)
  Sender: FDA-Public Use
  Company Number: None

PATIENT
  Age: 66 Year
  Sex: Male
  Weight: 75 kg

DRUGS (1)
  1. PHENYTOIN. [Suspect]
     Active Substance: PHENYTOIN
     Indication: SEIZURE
     Route: 048
     Dates: start: 20100115

REACTIONS (5)
  - Mental status changes [None]
  - Chorea [None]
  - Anticonvulsant drug level increased [None]
  - Agitation [None]
  - Nystagmus [None]

NARRATIVE: CASE EVENT DATE: 20120706
